FAERS Safety Report 19653772 (Version 1)
Quarter: 2021Q3

REPORT INFORMATION
  Report Type: Spontaneous
  Country: DE (occurrence: DE)
  Receive Date: 20210804
  Receipt Date: 20210804
  Transmission Date: 20211014
  Serious: Yes (Other)
  Sender: FDA-Public Use
  Company Number: DE-TAKEDA-2021TEU006707

PATIENT
  Age: 39 Year
  Sex: Female

DRUGS (5)
  1. TREOSULFAN [Suspect]
     Active Substance: TREOSULFAN
     Indication: HODGKIN^S DISEASE REFRACTORY
     Dosage: 250 MILLIGRAM, QD
     Route: 048
  2. ETORICOXIB. [Suspect]
     Active Substance: ETORICOXIB
     Indication: HODGKIN^S DISEASE REFRACTORY
     Dosage: 60 MILLIGRAM, QD
     Route: 048
  3. DEXAMETHASONE. [Suspect]
     Active Substance: DEXAMETHASONE
     Indication: HODGKIN^S DISEASE REFRACTORY
     Dosage: 0.5 MILLIGRAM, QD
     Route: 048
  4. EVEROLIMUS. [Suspect]
     Active Substance: EVEROLIMUS
     Indication: HODGKIN^S DISEASE REFRACTORY
     Dosage: 15 MILLIGRAM, QD
     Route: 048
  5. PIOGLITAZONE. [Suspect]
     Active Substance: PIOGLITAZONE
     Indication: HODGKIN^S DISEASE REFRACTORY
     Dosage: 45 MILLIGRAM, QD
     Route: 048

REACTIONS (1)
  - Graft versus host disease [Unknown]
